FAERS Safety Report 5801696-X (Version None)
Quarter: 2008Q3

REPORT INFORMATION
  Report Type: 
  Country: None (occurrence: None)
  Receive Date: 20080702
  Receipt Date: 20080619
  Transmission Date: 20090109
  Serious: Yes (Other)
  Sender: FDA-Public Use
  Company Number: 235848J08USA

PATIENT
  Age: 39 Year
  Sex: Female

DRUGS (6)
  1. REBIF [Suspect]
     Indication: MULTIPLE SCLEROSIS
     Dosage: 44 MCG, 3 IN 1 WEEKS, SUBCUTANEOUS
     Route: 058
     Dates: start: 20030509
  2. ADDERALL (OBETROL) [Concomitant]
  3. BENICAR [Concomitant]
  4. IMURAN [Concomitant]
  5. PREDNISONE TAB [Concomitant]
  6. AMANTADINE HCL [Concomitant]

REACTIONS (4)
  - BLISTER [None]
  - COMPLEX REGIONAL PAIN SYNDROME [None]
  - LOCALISED INFECTION [None]
  - TENDONITIS [None]
